FAERS Safety Report 20336731 (Version 1)
Quarter: 2022Q1

REPORT INFORMATION
  Report Type: Spontaneous
  Country: US (occurrence: None)
  Receive Date: 20220114
  Receipt Date: 20220114
  Transmission Date: 20220424
  Serious: No
  Sender: FDA-Public Use
  Company Number: None

PATIENT
  Age: 46 Year
  Sex: Female
  Weight: 73.48 kg

DRUGS (2)
  1. COSENTYX [Suspect]
     Active Substance: SECUKINUMAB
     Indication: Psoriatic arthropathy
     Dosage: INJECT 150MG (1 PEN) SUBCUTANEOUSLY AT DAY 28 (DOSE 5) THEN EVERY 5  WEEKS AS DIRECTED?
     Route: 058
     Dates: start: 202112
  2. COSENTYX [Suspect]
     Active Substance: SECUKINUMAB
     Indication: Rheumatoid arthritis

REACTIONS (1)
  - Malaise [None]
